FAERS Safety Report 25585013 (Version 1)
Quarter: 2025Q3

REPORT INFORMATION
  Report Type: Report from Study
  Country: GB (occurrence: GB)
  Receive Date: 20250721
  Receipt Date: 20250721
  Transmission Date: 20251021
  Serious: Yes (Hospitalization)
  Sender: SAMSUNG BIOEPIS
  Company Number: GB-SAMSUNG BIOEPIS-SB-2025-24373

PATIENT
  Age: 55 Year
  Sex: Male

DRUGS (1)
  1. ETANERCEPT [Suspect]
     Active Substance: ETANERCEPT
     Indication: Rheumatoid arthritis
     Route: 058
     Dates: start: 20250630

REACTIONS (5)
  - Hypoaesthesia [Unknown]
  - Pruritus [Unknown]
  - Paraesthesia [Unknown]
  - Feeling cold [Unknown]
  - Headache [Unknown]

NARRATIVE: CASE EVENT DATE: 20250710
